FAERS Safety Report 5955315-2 (Version None)
Quarter: 2008Q4

REPORT INFORMATION
  Report Type: 
  Country: None (occurrence: None)
  Receive Date: 20081117
  Receipt Date: 20081106
  Transmission Date: 20090506
  Serious: Yes (Death, Other)
  Sender: FDA-Public Use
  Company Number: US-MERCK-0805USA00702

PATIENT
  Age: 73 Year
  Sex: Male

DRUGS (1)
  1. FOSAMAX [Suspect]
     Indication: OSTEOPOROSIS
     Route: 048

REACTIONS (5)
  - ANGIOCENTRIC LYMPHOMA [None]
  - ANXIETY [None]
  - DEATH [None]
  - DEPRESSION [None]
  - OSTEONECROSIS [None]
